FAERS Safety Report 5710069-X (Version None)
Quarter: 2008Q2

REPORT INFORMATION
  Report Type: 
  Country: None (occurrence: None)
  Receive Date: 20080418
  Receipt Date: 20070815
  Transmission Date: 20081010
  Serious: Yes (Other)
  Sender: FDA-Public Use
  Company Number: US-ASTRAZENECA-2007UW19686

PATIENT
  Age: 72 Year
  Sex: Male
  Weight: 97.5 kg

DRUGS (5)
  1. TOPROL-XL [Suspect]
     Route: 048
  2. ASPIRIN [Concomitant]
  3. MULTI-VITAMIN [Concomitant]
  4. LIPITOR [Concomitant]
  5. HYDROCHLOROTHIAZIDE [Concomitant]

REACTIONS (1)
  - ERECTILE DYSFUNCTION [None]
